FAERS Safety Report 4607187-6 (Version None)
Quarter: 2005Q1

REPORT INFORMATION
  Report Type: 
  Country: None (occurrence: None)
  Receive Date: 20050309
  Receipt Date: 20050218
  Transmission Date: 20050727
  Serious: Yes (Other)
  Sender: FDA-Public Use
  Company Number: USA050291295

PATIENT
  Sex: Female

DRUGS (3)
  1. CYMBALTA [Suspect]
     Dosage: 60 MG DAY
     Dates: start: 20050111
  2. LANTUS [Concomitant]
  3. HUMALOG [Concomitant]

REACTIONS (5)
  - CELLULITIS [None]
  - DRUG ABUSER [None]
  - HEPATITIS C [None]
  - SUICIDE ATTEMPT [None]
  - UPPER RESPIRATORY TRACT INFECTION [None]
